FAERS Safety Report 9054277 (Version 6)
Quarter: 2014Q1

REPORT INFORMATION
  Report Type: Report from Study
  Country: JP (occurrence: JP)
  Receive Date: 20130208
  Receipt Date: 20140314
  Transmission Date: 20141002
  Serious: Yes (Hospitalization)
  Sender: FDA-Public Use
  Company Number: JP-GLAXOSMITHKLINE-B0865341A

PATIENT
  Age: 73 Year
  Sex: Male
  Weight: 79 kg

DRUGS (3)
  1. VOTRIENT 200MG [Suspect]
     Indication: MYXOFIBROSARCOMA
     Dosage: 800MG PER DAY
     Route: 048
     Dates: start: 20130117, end: 20130129
  2. VOTRIENT 200MG [Suspect]
     Indication: MYXOFIBROSARCOMA
     Dosage: 800MG PER DAY
     Route: 048
     Dates: start: 20130307, end: 20130320
  3. VOTRIENT 200MG [Suspect]
     Indication: MYXOFIBROSARCOMA
     Dosage: 600MG PER DAY
     Route: 048
     Dates: start: 20130321, end: 20130831

REACTIONS (6)
  - Pneumothorax [Recovered/Resolved]
  - Malaise [Recovering/Resolving]
  - Decreased appetite [Recovering/Resolving]
  - Pneumothorax [Recovered/Resolved]
  - Hepatic function abnormal [Recovered/Resolved]
  - Hypertension [Recovering/Resolving]
